FAERS Safety Report 4456418-4 (Version None)
Quarter: 2004Q3

REPORT INFORMATION
  Report Type: 
  Country: None (occurrence: None)
  Receive Date: 20040830
  Receipt Date: 20040607
  Transmission Date: 20050211
  Serious: No
  Sender: FDA-Public Use
  Company Number: 207085

PATIENT
  Age: 54 Year
  Sex: Female
  Weight: 100.7 kg

DRUGS (4)
  1. XOLAIR [Suspect]
     Indication: ASTHMA
     Dosage: 300 MG, 1/MONTH, SUBCUTANEOUS
     Route: 058
     Dates: start: 20031029
  2. ADVAIR DISKUS [Concomitant]
  3. PREDNISONE [Concomitant]
  4. SINGULAIR [Concomitant]

REACTIONS (1)
  - URTICARIA [None]
